FAERS Safety Report 9153569 (Version 1)
Quarter: 2013Q1

REPORT INFORMATION
  Report Type: Spontaneous
  Country: IN (occurrence: IN)
  Receive Date: 20130311
  Receipt Date: 20130311
  Transmission Date: 20140127
  Serious: Yes (Life-Threatening, Other)
  Sender: FDA-Public Use
  Company Number: PHBS2000IN02048

PATIENT
  Age: 25 Year
  Sex: Female

DRUGS (5)
  1. SIMULECT [Suspect]
     Indication: RENAL TRANSPLANT
     Dosage: 20 MG, UNK
     Dates: start: 20000223, end: 20000226
  2. SANDIMMUN NEORAL [Suspect]
     Indication: RENAL TRANSPLANT
     Dosage: UNK UKN, UNK
     Route: 065
     Dates: start: 20000223
  3. AZORAN [Concomitant]
     Dosage: UNK UKN, UNK
     Dates: start: 20000223
  4. SOLUMEDROL [Concomitant]
     Dosage: 5 MG, UNK
     Dates: start: 20000223
  5. ANTIEPILEPTICS [Concomitant]
     Dosage: UNK UKN, UNK

REACTIONS (10)
  - Kidney transplant rejection [Recovering/Resolving]
  - Urine output decreased [Unknown]
  - Hypertension [Unknown]
  - Graft complication [Unknown]
  - Grand mal convulsion [Unknown]
  - Renal haematoma [Unknown]
  - Intentional self-injury [Unknown]
  - Oral candidiasis [Unknown]
  - Leukopenia [Unknown]
  - Pyrexia [Unknown]
